FAERS Safety Report 10021208 (Version 1)
Quarter: 2014Q1

REPORT INFORMATION
  Report Type: Spontaneous
  Country: US (occurrence: US)
  Receive Date: 20140319
  Receipt Date: 20140319
  Transmission Date: 20141002
  Serious: No
  Sender: FDA-Public Use
  Company Number: US-PFIZER INC-2014078369

PATIENT
  Age: 47 Year
  Sex: Male
  Weight: 95.24 kg

DRUGS (5)
  1. CELEBREX [Suspect]
     Indication: ARTHRITIS
     Dosage: UNK, 2X/DAY
     Route: 048
     Dates: start: 2004, end: 2012
  2. CELEBREX [Suspect]
     Indication: INJURY
  3. CELEBREX [Suspect]
     Indication: LIGAMENT SPRAIN
  4. CELEBREX [Suspect]
     Indication: ROTATOR CUFF SYNDROME
  5. PERCOCET [Concomitant]
     Indication: LIMB DISCOMFORT
     Dosage: UNK

REACTIONS (2)
  - Rotator cuff syndrome [Not Recovered/Not Resolved]
  - Circumstance or information capable of leading to device use error [Unknown]
